FAERS Safety Report 25842869 (Version 1)
Quarter: 2025Q3

REPORT INFORMATION
  Report Type: Spontaneous
  Country: EU (occurrence: EU)
  Receive Date: 20250924
  Receipt Date: 20250924
  Transmission Date: 20251021
  Serious: Yes (Hospitalization, Other)
  Sender: BRECKENRIDGE PHARMACEUTICAL, INC.
  Company Number: EU-Breckenridge Pharmaceutical, Inc.-2185222

PATIENT
  Sex: Female

DRUGS (4)
  1. DULOXETINE [Suspect]
     Active Substance: DULOXETINE
     Indication: Product used for unknown indication
  2. TRAMADOL [Suspect]
     Active Substance: TRAMADOL
  3. NAPROXEN [Suspect]
     Active Substance: NAPROXEN
  4. PREGABALIN [Suspect]
     Active Substance: PREGABALIN

REACTIONS (7)
  - Pneumonia [Unknown]
  - Diarrhoea [Unknown]
  - Constipation [Unknown]
  - Rash [Unknown]
  - Asthma [Unknown]
  - Lung disorder [Unknown]
  - Post-traumatic stress disorder [Unknown]
